FAERS Safety Report 10262259 (Version 1)
Quarter: 2014Q2

REPORT INFORMATION
  Report Type: Spontaneous
  Country: US (occurrence: US)
  Receive Date: 20140626
  Receipt Date: 20140626
  Transmission Date: 20141212
  Serious: No
  Sender: FDA-Public Use
  Company Number: US-009507513-1405USA005794

PATIENT
  Age: 24 Year
  Sex: Female

DRUGS (5)
  1. CLARITIN CHEWABLE TABLETS [Suspect]
     Indication: SEASONAL ALLERGY
     Dosage: 10 MG, ONCE
     Route: 048
     Dates: start: 20140428
  2. CLARITIN CHEWABLE TABLETS [Suspect]
     Indication: OROPHARYNGEAL PAIN
  3. CLARITIN CHEWABLE TABLETS [Suspect]
     Indication: EAR PAIN
  4. CLARITIN CHEWABLE TABLETS [Suspect]
     Indication: SINUS DISORDER
  5. CLARITIN CHEWABLE TABLETS [Suspect]
     Indication: NASAL CONGESTION

REACTIONS (1)
  - Drug effect decreased [Unknown]
